FAERS Safety Report 13597065 (Version 2)
Quarter: 2017Q2

REPORT INFORMATION
  Report Type: Report from Study
  Country: GR (occurrence: GR)
  Receive Date: 20170531
  Receipt Date: 20170606
  Transmission Date: 20170830
  Serious: Yes (Other)
  Sender: FDA-Public Use
  Company Number: PHHY2017GR078422

PATIENT
  Age: 72 Year
  Sex: Male
  Weight: 70 kg

DRUGS (2)
  1. CICLOSPORIN [Suspect]
     Active Substance: CYCLOSPORINE
     Indication: PSORIASIS
     Dosage: 5 MG/KG, UNK
     Route: 065
  2. CICLOSPORIN [Suspect]
     Active Substance: CYCLOSPORINE
     Indication: ARTHRITIS

REACTIONS (9)
  - Blast cell crisis [Unknown]
  - Infestation [Not Recovered/Not Resolved]
  - Product use in unapproved indication [Unknown]
  - Psoriasis [Unknown]
  - Bone marrow toxicity [Unknown]
  - Blood creatinine increased [Unknown]
  - Leukopenia [Unknown]
  - Arthritis [Unknown]
  - Drug effect incomplete [Unknown]
